FAERS Safety Report 8853975 (Version 1)
Quarter: 2012Q4

REPORT INFORMATION
  Report Type: 
  Country: US (occurrence: US)
  Receive Date: 20121022
  Receipt Date: 20121022
  Transmission Date: 20130627
  Serious: Yes (Other)
  Sender: FDA-Public Use
  Company Number: PHHY2012US093325

PATIENT
  Age: 29 Year
  Sex: Female

DRUGS (1)
  1. GLEEVEC [Suspect]
     Dosage: 400 mg, daily

REACTIONS (3)
  - Deep vein thrombosis [Unknown]
  - Iron deficiency anaemia [Unknown]
  - Mucosal pigmentation [Unknown]
